FAERS Safety Report 6827006-7 (Version None)
Quarter: 2010Q3

REPORT INFORMATION
  Report Type: 
  Country: None (occurrence: None)
  Receive Date: 20100709
  Receipt Date: 20100702
  Transmission Date: 20110219
  Serious: Yes (Other)
  Sender: FDA-Public Use
  Company Number: GB-TEVA-240054ISR

PATIENT
  Age: 64 Year
  Sex: Male
  Weight: 90.2 kg

DRUGS (1)
  1. OXALIPLATIN [Suspect]
     Route: 042
     Dates: start: 20100617, end: 20100617

REACTIONS (3)
  - BRADYCARDIA [None]
  - ERYTHEMA [None]
  - HYPOTENSION [None]
